FAERS Safety Report 9527897 (Version 1)
Quarter: 2013Q3

REPORT INFORMATION
  Report Type: Spontaneous
  Country: US (occurrence: US)
  Receive Date: 20130917
  Receipt Date: 20130917
  Transmission Date: 20140515
  Serious: No
  Sender: FDA-Public Use
  Company Number: US-PFIZER INC-2013263662

PATIENT
  Age: 14 Year
  Sex: Male
  Weight: 51.7 kg

DRUGS (1)
  1. GENOTROPIN [Suspect]
     Indication: GROWTH RETARDATION
     Dosage: 2 MG, 1X/DAY
     Dates: start: 201308

REACTIONS (1)
  - Dehydration [Unknown]
